FAERS Safety Report 25446921 (Version 1)
Quarter: 2025Q2

REPORT INFORMATION
  Report Type: Spontaneous
  Country: US (occurrence: US)
  Receive Date: 20250617
  Receipt Date: 20250617
  Transmission Date: 20250716
  Serious: Yes (Other)
  Sender: MALLINCKRODT
  Company Number: US-MALLINCKRODT-MNK202503512

PATIENT
  Sex: Female

DRUGS (1)
  1. CORTICOTROPIN [Suspect]
     Active Substance: CORTICOTROPIN
     Indication: Iridocyclitis

REACTIONS (3)
  - Iridocyclitis [Unknown]
  - Condition aggravated [Unknown]
  - Adverse event [Unknown]
